FAERS Safety Report 23788591 (Version 2)
Quarter: 2024Q2

REPORT INFORMATION
  Report Type: Spontaneous
  Country: GB (occurrence: GB)
  Receive Date: 20240426
  Receipt Date: 20240506
  Transmission Date: 20240716
  Serious: Yes (Hospitalization, Other)
  Sender: FDA-Public Use
  Company Number: GB-MYLANLABS-2024M1037389

PATIENT
  Sex: Male

DRUGS (3)
  1. CLOZARIL [Suspect]
     Active Substance: CLOZAPINE
     Indication: Schizophrenia
     Dosage: UNK
     Route: 048
     Dates: start: 20090915
  2. CLOZARIL [Suspect]
     Active Substance: CLOZAPINE
     Dosage: 325 MILLIGRAM, OE, DOSE REDUCED GRADUALLY FOLLOWING ADMISSION
     Route: 048
  3. AMISULPRIDE [Suspect]
     Active Substance: AMISULPRIDE
     Indication: Product used for unknown indication
     Dosage: DOSE GRADUALLY REDUCED AND STOPPED
     Route: 065

REACTIONS (5)
  - Hallucination, auditory [Recovering/Resolving]
  - Negative symptoms in schizophrenia [Recovering/Resolving]
  - Mobility decreased [Recovering/Resolving]
  - Fall [Recovering/Resolving]
  - Musculoskeletal stiffness [Recovering/Resolving]
